FAERS Safety Report 4703357-7 (Version None)
Quarter: 2005Q2

REPORT INFORMATION
  Report Type: 
  Country: None (occurrence: None)
  Receive Date: 20050624
  Receipt Date: 20050323
  Transmission Date: 20051028
  Serious: No
  Sender: FDA-Public Use
  Company Number: 2005BI002345

PATIENT
  Age: 41 Year
  Sex: Female

DRUGS (13)
  1. AVONEX [Suspect]
     Indication: MULTIPLE SCLEROSIS
     Dosage: 30 UG;QW;IM
     Route: 030
     Dates: start: 20000301
  2. AVONEX [Suspect]
     Indication: MULTIPLE SCLEROSIS
     Dosage: 30 UG;QW;IM
     Route: 030
  3. NATALIZUMAB [Suspect]
     Indication: MULTIPLE SCLEROSIS
     Dosage: 300 MG;QM;IV
     Route: 042
     Dates: start: 20050124
  4. ALLEGRA [Concomitant]
  5. NORTRIPTYLINE HCL [Concomitant]
  6. PRILOSEC [Concomitant]
  7. HYDROCODONE [Concomitant]
  8. ULTRACET [Concomitant]
  9. ZOLOFT [Concomitant]
  10. ZANAFLEX [Concomitant]
  11. ASCORBIC ACID [Concomitant]
  12. VITAMIN D [Concomitant]
  13. CALCIUM GLUCONATE [Concomitant]

REACTIONS (2)
  - HERPES SIMPLEX [None]
  - PYREXIA [None]
